FAERS Safety Report 7365108-X (Version None)
Quarter: 2011Q1

REPORT INFORMATION
  Report Type: 
  Country: None (occurrence: None)
  Receive Date: 20110321
  Receipt Date: 20110316
  Transmission Date: 20110831
  Serious: Yes (Hospitalization)
  Sender: FDA-Public Use
  Company Number: US-PFIZER INC-2011059170

PATIENT
  Age: 27 Year
  Sex: Male

DRUGS (1)
  1. CELEBREX [Suspect]

REACTIONS (2)
  - CHEST PAIN [None]
  - BLOOD PRESSURE INCREASED [None]
